FAERS Safety Report 7973283-9 (Version None)
Quarter: 2011Q4

REPORT INFORMATION
  Report Type: 
  Country: None (occurrence: None)
  Receive Date: 20111213
  Receipt Date: 20111201
  Transmission Date: 20120403
  Serious: Yes (Other)
  Sender: FDA-Public Use
  Company Number: PHHY2011US106060

PATIENT
  Age: 61 Year
  Sex: Male

DRUGS (3)
  1. CYCLOSPORINE [Suspect]
     Indication: LIVER TRANSPLANT
  2. SIROLIMUS [Concomitant]
  3. MYCOPHENOLATE MOFETIL [Concomitant]
     Indication: LIVER TRANSPLANT

REACTIONS (3)
  - ATYPICAL FIBROXANTHOMA [None]
  - UNDIFFERENTIATED SARCOMA [None]
  - SQUAMOUS CELL CARCINOMA [None]
